FAERS Safety Report 24153459 (Version 1)
Quarter: 2024Q3

REPORT INFORMATION
  Report Type: Spontaneous
  Country: US (occurrence: None)
  Receive Date: 20240722
  Receipt Date: 20240722
  Transmission Date: 20241017
  Serious: No
  Sender: Public
  Company Number: None

PATIENT
  Sex: 0

DRUGS (1)
  1. BUPROPION [Suspect]
     Active Substance: BUPROPION

REACTIONS (5)
  - Fatigue [None]
  - Influenza like illness [None]
  - Oropharyngeal pain [None]
  - Wheezing [None]
  - Sleep disorder [None]

NARRATIVE: CASE EVENT DATE: 20240719
